FAERS Safety Report 8051458-0 (Version None)
Quarter: 2012Q1

REPORT INFORMATION
  Report Type: 
  Country: None (occurrence: None)
  Receive Date: 20120117
  Receipt Date: 20120110
  Transmission Date: 20120608
  Serious: Yes (Other)
  Sender: FDA-Public Use
  Company Number: US-ASTRAZENECA-2012SE02195

PATIENT
  Age: 47 Year
  Sex: Male
  Weight: 90.7 kg

DRUGS (3)
  1. SEROQUEL [Suspect]
     Indication: MOOD DISORDER DUE TO A GENERAL MEDICAL CONDITION
     Route: 048
  2. DEPAKOTE [Concomitant]
  3. SEROQUEL [Suspect]
     Route: 048

REACTIONS (12)
  - WEIGHT DECREASED [None]
  - WRONG TECHNIQUE IN DRUG USAGE PROCESS [None]
  - INSOMNIA [None]
  - SOMNOLENCE [None]
  - OFF LABEL USE [None]
  - MEMORY IMPAIRMENT [None]
  - CONVULSION [None]
  - CRANIOCEREBRAL INJURY [None]
  - STRESS [None]
  - TACHYPHRENIA [None]
  - ANGER [None]
  - FATIGUE [None]
